FAERS Safety Report 17279877 (Version 2)
Quarter: 2020Q1

REPORT INFORMATION
  Report Type: Other
  Country: IT (occurrence: IT)
  Receive Date: 20200116
  Receipt Date: 20200130
  Transmission Date: 20200409
  Serious: Yes (Disabling)
  Sender: FDA-Public Use
  Company Number: IT-STRIDES ARCOLAB LIMITED-2020SP000326

PATIENT
  Age: 74 Year
  Sex: Male
  Weight: 82 kg

DRUGS (1)
  1. DUTASTERIDE. [Suspect]
     Active Substance: DUTASTERIDE
     Indication: BENIGN PROSTATIC HYPERPLASIA
     Dosage: 0.5 MILLIGRAM, QD
     Route: 048
     Dates: start: 20190801, end: 20200102

REACTIONS (6)
  - Myalgia [Unknown]
  - Dyspnoea [Unknown]
  - Vascular pain [Unknown]
  - Eyelid disorder [Unknown]
  - Testicular pain [Unknown]
  - Testicular oedema [Unknown]
